FAERS Safety Report 4413242-6 (Version None)
Quarter: 2004Q3

REPORT INFORMATION
  Report Type: 
  Country: None (occurrence: None)
  Receive Date: 20040728
  Receipt Date: 20040714
  Transmission Date: 20050211
  Serious: Yes (Other)
  Sender: FDA-Public Use
  Company Number: USA040566996

PATIENT
  Age: 84 Year
  Sex: Female

DRUGS (2)
  1. FORTEO [Suspect]
     Indication: OSTEOPOROSIS
     Dosage: 20 UG DAY
     Dates: start: 20040408, end: 20040429
  2. SYNTHROID [Concomitant]

REACTIONS (5)
  - FUNGAL INFECTION [None]
  - PHARMACEUTICAL PRODUCT COMPLAINT [None]
  - SQUAMOUS CELL CARCINOMA [None]
  - URINARY TRACT INFECTION [None]
  - VULVAL CANCER [None]
